FAERS Safety Report 6636615-X (Version None)
Quarter: 2010Q1

REPORT INFORMATION
  Report Type: 
  Country: None (occurrence: None)
  Receive Date: 20100316
  Receipt Date: 20100310
  Transmission Date: 20100710
  Serious: Yes (Other)
  Sender: FDA-Public Use
  Company Number: -MERCK-1003VEN00001

PATIENT
  Age: 52 Year
  Sex: Female

DRUGS (3)
  1. CANCIDAS [Suspect]
     Route: 042
  2. MIDAZOLAM [Concomitant]
     Route: 065
  3. COLISTIN [Concomitant]
     Route: 065

REACTIONS (4)
  - CONVULSION [None]
  - FLUSHING [None]
  - GAZE PALSY [None]
  - RASH [None]
